FAERS Safety Report 12889360 (Version 1)
Quarter: 2016Q4

REPORT INFORMATION
  Report Type: Spontaneous
  Country: NO (occurrence: NO)
  Receive Date: 20161027
  Receipt Date: 20161027
  Transmission Date: 20170207
  Serious: Yes (Life-Threatening)
  Sender: FDA-Public Use
  Company Number: NO-009507513-1610NOR013458

PATIENT
  Age: 65 Year
  Sex: Male

DRUGS (4)
  1. ESMERON [Suspect]
     Active Substance: ROCURONIUM BROMIDE
     Indication: ENDOTRACHEAL INTUBATION
     Route: 042
     Dates: start: 20161005, end: 20161005
  2. PROPOFOL. [Concomitant]
     Active Substance: PROPOFOL
     Indication: STUPOR
     Dosage: UNK
     Route: 042
     Dates: start: 20161005, end: 20161005
  3. PROPOFOL. [Concomitant]
     Active Substance: PROPOFOL
     Dosage: UNK
     Route: 042
     Dates: start: 20161005, end: 20161005
  4. REMIFENTANIL HYDROCHLORIDE [Concomitant]
     Active Substance: REMIFENTANIL HYDROCHLORIDE
     Indication: STUPOR
     Dosage: UNK
     Route: 042
     Dates: start: 20161005, end: 20161005

REACTIONS (4)
  - Atrial fibrillation [Recovering/Resolving]
  - Cardiovascular disorder [Recovering/Resolving]
  - Bronchospasm [Recovering/Resolving]
  - Anaphylactic reaction [Recovering/Resolving]

NARRATIVE: CASE EVENT DATE: 20161005
